FAERS Safety Report 20383802 (Version 4)
Quarter: 2022Q1

REPORT INFORMATION
  Report Type: Spontaneous
  Country: US (occurrence: US)
  Receive Date: 20220127
  Receipt Date: 20220323
  Transmission Date: 20220423
  Serious: Yes (Other)
  Sender: FDA-Public Use
  Company Number: US-FRESENIUS KABI-FK202200892

PATIENT
  Age: 74 Year
  Sex: Female
  Weight: 64 kg

DRUGS (11)
  1. FLUDARABINE [Suspect]
     Active Substance: FLUDARABINE PHOSPHATE
     Indication: Plasma cell myeloma
     Route: 042
     Dates: start: 20210604, end: 20210606
  2. CYCLOPHOSPHAMIDE [Suspect]
     Active Substance: CYCLOPHOSPHAMIDE
     Indication: Plasma cell myeloma
     Route: 042
     Dates: start: 20210604, end: 20210606
  3. SIMVASTATIN [Concomitant]
     Active Substance: SIMVASTATIN
     Indication: Hyperlipidaemia
     Dosage: ONGOING
     Route: 048
  4. ACYCLOVIR [Concomitant]
     Active Substance: ACYCLOVIR
     Indication: Prophylaxis
     Dosage: ONGOING
     Route: 048
     Dates: start: 20201013
  5. COLESEVELAM [Concomitant]
     Active Substance: COLESEVELAM
     Indication: Diarrhoea
     Dosage: ONGOING
     Route: 048
     Dates: start: 20171229
  6. CYANOCOBALAMIN [Concomitant]
     Active Substance: CYANOCOBALAMIN
     Indication: Supplementation therapy
     Dosage: ONGOING
     Route: 048
     Dates: start: 20180619
  7. FAMOTIDINE [Concomitant]
     Active Substance: FAMOTIDINE
     Indication: Gastrooesophageal reflux disease
     Dosage: ONGOING
     Route: 048
     Dates: start: 20210609
  8. LACTOBACILLUS ACIDOPHILUS [Concomitant]
     Active Substance: LACTOBACILLUS ACIDOPHILUS
     Indication: Prophylaxis
     Dosage: ONGOING
     Route: 048
     Dates: start: 20190628
  9. LISINOPRIL [Concomitant]
     Active Substance: LISINOPRIL
     Indication: Hypertension
     Dosage: ONGOING
     Route: 048
     Dates: start: 20210729
  10. VITAMINS NOS [Concomitant]
     Active Substance: VITAMINS
     Indication: Supplementation therapy
     Dosage: 1 TABLET, ONGOING
     Route: 048
     Dates: start: 20170620
  11. LOPERAMIDE [Concomitant]
     Active Substance: LOPERAMIDE
     Indication: Diarrhoea
     Dosage: ONGOING
     Route: 048
     Dates: start: 20210623

REACTIONS (1)
  - Myelodysplastic syndrome [Not Recovered/Not Resolved]

NARRATIVE: CASE EVENT DATE: 20211213
